FAERS Safety Report 9416609 (Version 1)
Quarter: 2013Q3

REPORT INFORMATION
  Report Type: Spontaneous
  Country: PL (occurrence: None)
  Receive Date: 20130719
  Receipt Date: 20130719
  Transmission Date: 20140515
  Serious: Yes (Hospitalization)
  Sender: FDA-Public Use
  Company Number: AUR-APL-2013-05991

PATIENT
  Age: 34 Year
  Sex: Female

DRUGS (1)
  1. AMOXICILLIN+CLAVULANIC ACID [Suspect]
     Indication: PRODUCT USED FOR UNKNOWN INDICATION

REACTIONS (15)
  - Drug ineffective [None]
  - Nausea [None]
  - Vomiting [None]
  - Diarrhoea [None]
  - Dyspnoea [None]
  - Dehydration [None]
  - Septic shock [None]
  - Plasmodium falciparum infection [None]
  - Uterine haemorrhage [None]
  - Foetal death [None]
  - Abortion spontaneous [None]
  - Maternal drugs affecting foetus [None]
  - Acute respiratory distress syndrome [None]
  - Disseminated intravascular coagulation [None]
  - Haemoglobinuria [None]
